FAERS Safety Report 14117558 (Version 1)
Quarter: 2017Q4

REPORT INFORMATION
  Report Type: Spontaneous
  Country: US (occurrence: US)
  Receive Date: 20171023
  Receipt Date: 20171023
  Transmission Date: 20180321
  Serious: No
  Sender: FDA-Public Use
  Company Number: US-ALLERGAN-1709084US

PATIENT
  Sex: Male

DRUGS (12)
  1. PANTOPRAZOLE [Concomitant]
     Active Substance: PANTOPRAZOLE
  2. TRAMADOL. [Concomitant]
     Active Substance: TRAMADOL
  3. GABAPENTIN. [Concomitant]
     Active Substance: GABAPENTIN
  4. RANITIDINE. [Concomitant]
     Active Substance: RANITIDINE
  5. METAMUCIL [Concomitant]
     Active Substance: PLANTAGO SEED
  6. LINZESS [Suspect]
     Active Substance: LINACLOTIDE
     Indication: CONSTIPATION
     Dosage: 290 ?G, QD
     Route: 048
     Dates: start: 20161207
  7. ASPIRIN. [Concomitant]
     Active Substance: ASPIRIN
  8. NIFEDIPINE. [Concomitant]
     Active Substance: NIFEDIPINE
  9. DULCOLAX NOS [Concomitant]
     Active Substance: BISACODYL OR DOCUSATE SODIUM
     Dosage: UNK UNK, BID
  10. TAMSULOSIN [Concomitant]
     Active Substance: TAMSULOSIN
  11. SIMVASTATIN. [Concomitant]
     Active Substance: SIMVASTATIN
  12. DIAZEPAM. [Concomitant]
     Active Substance: DIAZEPAM

REACTIONS (2)
  - Drug ineffective [Unknown]
  - Off label use [Unknown]
